FAERS Safety Report 25670007 (Version 1)
Quarter: 2025Q3

REPORT INFORMATION
  Report Type: Spontaneous
  Country: US (occurrence: None)
  Receive Date: 20250811
  Receipt Date: 20250811
  Transmission Date: 20251021
  Serious: Yes (Hospitalization)
  Sender: FDA-CTU
  Company Number: None

PATIENT
  Age: 66 Year
  Sex: Female

DRUGS (1)
  1. KESIMPTA [Suspect]
     Active Substance: OFATUMUMAB
     Indication: Multiple sclerosis
     Route: 058
     Dates: start: 20230803

REACTIONS (6)
  - Abdominal pain [None]
  - Infection [None]
  - Neoplasm malignant [None]
  - Rash [None]
  - Ovarian cancer [None]
  - Herpes zoster [None]

NARRATIVE: CASE EVENT DATE: 20250721
